FAERS Safety Report 6837716-3 (Version None)
Quarter: 2010Q3

REPORT INFORMATION
  Report Type: 
  Country: None (occurrence: None)
  Receive Date: 20100713
  Receipt Date: 20070521
  Transmission Date: 20110219
  Serious: No
  Sender: FDA-Public Use
  Company Number: US-PFIZER INC-2007041130

PATIENT
  Age: 40 Year
  Sex: Female
  Weight: 61.363 kg

DRUGS (9)
  1. CHANTIX [Suspect]
     Indication: SMOKING CESSATION THERAPY
     Dates: start: 20070101, end: 20070101
  2. PLAQUENIL [Concomitant]
  3. PREVACID [Concomitant]
  4. BENTYL [Concomitant]
  5. PREDNISOLONE [Concomitant]
  6. TRILEPTAL [Concomitant]
  7. IRON [Concomitant]
  8. CALCIUM [Concomitant]
  9. VITAMIN C [Concomitant]

REACTIONS (2)
  - NAUSEA [None]
  - VOMITING [None]
